FAERS Safety Report 14137094 (Version 2)
Quarter: 2017Q4

REPORT INFORMATION
  Report Type: Other
  Country: CA (occurrence: CA)
  Receive Date: 20171027
  Receipt Date: 20171123
  Transmission Date: 20180321
  Serious: Yes (Other)
  Sender: FDA-Public Use
  Company Number: CA-APOTEX-2017AP020197

PATIENT
  Age: 44 Year
  Sex: Female

DRUGS (3)
  1. APO-LEFLUNOMIDE [Suspect]
     Active Substance: LEFLUNOMIDE
     Indication: RHEUMATOID ARTHRITIS
     Dosage: 20 MG, QD
     Route: 065
  2. ENBREL [Suspect]
     Active Substance: ETANERCEPT
     Indication: RHEUMATOID ARTHRITIS
     Dosage: UNK
     Route: 058
  3. PLAQUENIL                          /00072602/ [Suspect]
     Active Substance: HYDROXYCHLOROQUINE DIPHOSPHATE
     Indication: RHEUMATOID ARTHRITIS
     Dosage: 400 MG, QD
     Route: 065

REACTIONS (9)
  - Rash [Recovering/Resolving]
  - Drug ineffective [Recovering/Resolving]
  - Abdominal discomfort [Recovering/Resolving]
  - Rheumatoid arthritis [Recovering/Resolving]
  - Leukopenia [Recovering/Resolving]
  - Adverse event [Recovering/Resolving]
  - Joint swelling [Recovering/Resolving]
  - Visual impairment [Recovering/Resolving]
  - Toxicity to various agents [Recovering/Resolving]
